FAERS Safety Report 23066966 (Version 1)
Quarter: 2023Q4

REPORT INFORMATION
  Report Type: Report from Study
  Country: US (occurrence: US)
  Receive Date: 20231016
  Receipt Date: 20231016
  Transmission Date: 20240110
  Serious: Yes (Hospitalization)
  Sender: FDA-Public Use
  Company Number: US-Accord-384170

PATIENT
  Age: 73 Year
  Sex: Female

DRUGS (1)
  1. CLOZAPINE [Suspect]
     Active Substance: CLOZAPINE
     Indication: Product used for unknown indication
     Dosage: 300 MG DAILY AT BEDTIME.
     Route: 048

REACTIONS (5)
  - Asthenia [Unknown]
  - Confusional state [Unknown]
  - Dysarthria [Unknown]
  - Tremor [Unknown]
  - Leukocytosis [Unknown]
